FAERS Safety Report 19084111 (Version 3)
Quarter: 2025Q1

REPORT INFORMATION
  Report Type: Report from Study
  Country: IT (occurrence: IT)
  Receive Date: 20210401
  Receipt Date: 20250130
  Transmission Date: 20250409
  Serious: Yes (Hospitalization)
  Sender: PUMA
  Company Number: IT-PFM-2021-03241

PATIENT

DRUGS (8)
  1. NERATINIB [Suspect]
     Active Substance: NERATINIB
     Indication: Salivary gland cancer
     Dosage: 240 MG, QD (1/DAY) AS PART OF COMPASSIONATE USE PROGRAM
     Route: 065
  2. NERATINIB [Suspect]
     Active Substance: NERATINIB
     Indication: Off label use
     Route: 065
     Dates: start: 20210311
  3. LANSOPRAZOLE [Concomitant]
     Active Substance: LANSOPRAZOLE
     Indication: Prophylaxis
     Dosage: 1 DF DAILY
     Route: 065
     Dates: start: 20200212
  4. LYRICA [Concomitant]
     Active Substance: PREGABALIN
     Indication: Pain
     Dosage: 2 DF DAILY
     Route: 065
     Dates: start: 20190314
  5. PROPYLTHIOURACIL [Concomitant]
     Active Substance: PROPYLTHIOURACIL
     Indication: Thyroid disorder
     Dosage: 2 DF DAILY
     Route: 065
     Dates: start: 20190314
  6. DELORAZEPAM [Concomitant]
     Active Substance: DELORAZEPAM
     Indication: Anxiety
     Route: 065
     Dates: start: 20200623
  7. CHOLECALCIFEROL [Concomitant]
     Active Substance: CHOLECALCIFEROL
     Indication: Vitamin supplementation
     Route: 065
     Dates: start: 20210128
  8. LOPERAMIDE [Concomitant]
     Active Substance: LOPERAMIDE
     Indication: Prophylaxis
     Route: 065

REACTIONS (4)
  - Chronic obstructive pulmonary disease [Recovering/Resolving]
  - COVID-19 [Recovered/Resolved]
  - Product use in unapproved indication [Unknown]
  - Off label use [Unknown]
